FAERS Safety Report 15277415 (Version 1)
Quarter: 2018Q4

REPORT INFORMATION
  Report Type: Spontaneous
  Country: HR (occurrence: HR)
  Receive Date: 20180814
  Receipt Date: 20180814
  Transmission Date: 20190204
  Serious: Yes (Hospitalization)
  Sender: FDA-Public Use
  Company Number: HR-B.I. PHARMACEUTICALS,INC./RIDGEFIELD-2018-12-002754

PATIENT
  Age: 71 Year
  Sex: Male

DRUGS (6)
  1. ACIPAN [Concomitant]
     Active Substance: PANTOPRAZOLE SODIUM
     Indication: GASTROOESOPHAGEAL REFLUX DISEASE
     Dosage: FORM: COATED TABLETS, ENTERIC
     Route: 048
     Dates: start: 201801
  2. TRIPLIXAM [Concomitant]
     Active Substance: AMLODIPINE BESYLATE\INDAPAMIDE\PERINDOPRIL ARGININE
     Indication: HYPERTENSION
     Route: 048
     Dates: start: 201801, end: 20180711
  3. DEXOMEN [Interacting]
     Active Substance: DEXKETOPROFEN TROMETAMOL
     Indication: RIB FRACTURE
     Route: 048
     Dates: start: 20180709, end: 20180711
  4. CORDARONE [Concomitant]
     Active Substance: AMIODARONE HYDROCHLORIDE
     Indication: ATRIAL FIBRILLATION
     Route: 048
     Dates: start: 201801
  5. ROSWERA [Concomitant]
     Active Substance: ROSUVASTATIN
     Indication: DYSLIPIDAEMIA
     Route: 048
     Dates: start: 201801, end: 20180711
  6. PRADAXA [Suspect]
     Active Substance: DABIGATRAN ETEXILATE MESYLATE
     Indication: ATRIAL FIBRILLATION
     Route: 048
     Dates: start: 201705, end: 20180711

REACTIONS (4)
  - Haemoglobin decreased [Recovered/Resolved]
  - Drug interaction [Recovered/Resolved]
  - Gastritis erosive [Recovered/Resolved]
  - Haematochezia [Recovered/Resolved]

NARRATIVE: CASE EVENT DATE: 20180709
